FAERS Safety Report 6636857-3 (Version None)
Quarter: 2010Q1

REPORT INFORMATION
  Report Type: 
  Country: None (occurrence: None)
  Receive Date: 20100316
  Receipt Date: 20100302
  Transmission Date: 20100710
  Serious: No
  Sender: FDA-Public Use
  Company Number: FR-ELI_LILLY_AND_COMPANY-FR200909004583

PATIENT
  Sex: Female
  Weight: 57 kg

DRUGS (14)
  1. FORTEO [Suspect]
     Indication: OSTEOPOROSIS
     Dosage: 20 UG, DAILY (1/D)
     Route: 058
     Dates: start: 20090610
  2. NEORAL [Concomitant]
     Dosage: 50 MG, 2/D
     Route: 065
     Dates: start: 20000101
  3. SOLUPRED [Concomitant]
     Dosage: 10 MG, DAILY (1/D)
     Route: 065
     Dates: start: 20000101
  4. CELLCEPT [Concomitant]
     Dosage: 250 MG, 2/D
     Route: 065
  5. ATACAND [Concomitant]
     Dosage: 8 MG, DAILY (1/D)
     Route: 065
     Dates: start: 20000101
  6. CELECTOL [Concomitant]
     Dosage: 0.5 TAB, DAILY (1/D)
     Route: 065
     Dates: start: 20000101
  7. EUPRESSYL [Concomitant]
     Dosage: 30 MG, 2/D
     Route: 065
  8. ZITHROMAX [Concomitant]
     Dosage: 250 MG, EVERY 2 DAYS
     Route: 065
  9. BACTRIM [Concomitant]
     Dosage: UNK, 3/W
     Route: 065
     Dates: start: 20000101
  10. CACIT D3 [Concomitant]
     Dosage: 1 TAB, DAILY (1/D)
     Route: 065
  11. SERETIDE [Concomitant]
     Dosage: 2 INHALATIONS UNK
     Route: 065
  12. SPIRIVA [Concomitant]
     Dosage: 1 TABLET
     Route: 065
  13. LEVOTHYROX [Concomitant]
     Dosage: 100 UG, EVERY TWO DAYS
     Route: 065
  14. LEVOTHYROX [Concomitant]
     Dosage: 75 UG, EVERY TWO DAYS
     Route: 065

REACTIONS (1)
  - CREATININE RENAL CLEARANCE INCREASED [None]
